FAERS Safety Report 17735615 (Version 1)
Quarter: 2020Q2

REPORT INFORMATION
  Report Type: Spontaneous
  Country: US (occurrence: US)
  Receive Date: 20200501
  Receipt Date: 20200501
  Transmission Date: 20200714
  Serious: No
  Sender: FDA-Public Use
  Company Number: US-GALDERMA-US2020014241

PATIENT
  Sex: Female

DRUGS (1)
  1. DIFFERIN [Suspect]
     Active Substance: ADAPALENE
     Indication: ACNE
     Route: 061
     Dates: start: 201905

REACTIONS (2)
  - Condition aggravated [Unknown]
  - Seborrhoea [Unknown]
